FAERS Safety Report 10519693 (Version 1)
Quarter: 2014Q4

REPORT INFORMATION
  Report Type: Spontaneous
  Country: DE (occurrence: DE)
  Receive Date: 20141015
  Receipt Date: 20141015
  Transmission Date: 20150528
  Serious: Yes (Hospitalization)
  Sender: FDA-Public Use
  Company Number: DE-TEVA-514887GER

PATIENT
  Sex: Male

DRUGS (1)
  1. COTRIM-RATIOPHARM AMPULLEN SF 480 MG/5 ML [Suspect]
     Active Substance: SULFAMETHOXAZOLE\TRIMETHOPRIM
     Indication: PNEUMOCYSTIS JIROVECII PNEUMONIA
     Dosage: 7200 MILLIGRAM DAILY;
     Route: 042
     Dates: start: 200709, end: 2007

REACTIONS (8)
  - Syncope [Recovered/Resolved]
  - Upper limb fracture [None]
  - Dysarthria [Recovered/Resolved]
  - Nausea [Recovered/Resolved]
  - Hallucination [Recovered/Resolved]
  - Overdose [Unknown]
  - Vomiting [Recovered/Resolved]
  - Agnosia [Recovered/Resolved]

NARRATIVE: CASE EVENT DATE: 2007
